FAERS Safety Report 13949684 (Version 3)
Quarter: 2017Q3

REPORT INFORMATION
  Report Type: Report from Study
  Country: IT (occurrence: IT)
  Receive Date: 20170908
  Receipt Date: 20170922
  Transmission Date: 20171128
  Serious: Yes (Other)
  Sender: FDA-Public Use
  Company Number: IT-SA-2017SA165648

PATIENT
  Age: 22 Year
  Sex: Male
  Weight: 50 kg

DRUGS (3)
  1. FILGRASTIM [Suspect]
     Active Substance: FILGRASTIM
     Indication: HAEMATOPOIETIC STEM CELL MOBILISATION
     Route: 058
  2. DESFERRIOXAMINE [Concomitant]
     Active Substance: DEFEROXAMINE MESYLATE
     Route: 065
  3. MOZOBIL [Suspect]
     Active Substance: PLERIXAFOR
     Indication: HAEMATOPOIETIC STEM CELL MOBILISATION
     Route: 058

REACTIONS (4)
  - Palpitations [Recovered/Resolved]
  - Hyperleukocytosis [Recovered/Resolved]
  - Feeling hot [Recovered/Resolved]
  - Bone pain [Recovered/Resolved]
